FAERS Safety Report 7710145-6 (Version None)
Quarter: 2011Q3

REPORT INFORMATION
  Report Type: 
  Country: None (occurrence: None)
  Receive Date: 20110825
  Receipt Date: 20110819
  Transmission Date: 20111222
  Serious: Yes (Hospitalization, Other)
  Sender: FDA-Public Use
  Company Number: JP-PFIZER INC-2011105935

PATIENT
  Age: 67 Year
  Sex: Female

DRUGS (10)
  1. PREDNISOLONE [Concomitant]
     Indication: POLYMYOSITIS
     Dosage: 7.5 MG MORNING AND NOON/10 MG EVENING
     Route: 048
     Dates: start: 20110331, end: 20110413
  2. VFEND [Suspect]
     Indication: ASPERGILLUS TEST POSITIVE
     Dosage: 400 MG/DAY
     Route: 048
     Dates: start: 20110408, end: 20110516
  3. ALFAROL [Concomitant]
     Indication: OSTEOPOROSIS
     Dosage: 0.25 UG, 1X/DAY
     Route: 048
     Dates: start: 20110303
  4. VFEND [Suspect]
     Indication: ASPERGILLOSIS
  5. ITRACONAZOLE [Concomitant]
     Indication: ASPERGILLUS TEST POSITIVE
     Dosage: 100 MG, 1X/DAY
     Route: 048
     Dates: start: 20110322, end: 20110401
  6. SELBEX [Concomitant]
     Indication: PROPHYLAXIS
     Dosage: 0.5 G, 3X/DAY
     Route: 048
     Dates: start: 20110301
  7. URSO 250 [Concomitant]
     Indication: LIVER DISORDER
     Dosage: 200 MG, 3X/DAY
     Route: 048
     Dates: start: 20110311, end: 20110509
  8. SULFAMETHOXAZOLE [Concomitant]
     Indication: INFECTION PROPHYLAXIS
     Dosage: 1 G, 1X/DAY
     Route: 048
     Dates: start: 20110408
  9. FAMOTIDINE [Concomitant]
     Indication: PROPHYLAXIS
     Dosage: 20 MG, 2X/DAY
     Route: 048
     Dates: start: 20110303
  10. FOSAMAX [Concomitant]
     Indication: OSTEOPOROSIS PROPHYLAXIS
     Dosage: 35 MG, 1X/DAY
     Route: 048
     Dates: start: 20110303

REACTIONS (1)
  - PERONEAL NERVE PALSY [None]
